FAERS Safety Report 5270575-1 (Version None)
Quarter: 2007Q1

REPORT INFORMATION
  Report Type: 
  Country: None (occurrence: None)
  Receive Date: 20070315
  Receipt Date: 20070306
  Transmission Date: 20070707
  Serious: Yes (Other)
  Sender: FDA-Public Use
  Company Number: 237814

PATIENT
  Age: 50 Year
  Sex: Female
  Weight: 77.1 kg

DRUGS (11)
  1. XOLAIR [Suspect]
     Indication: ASTHMA
     Dosage: UNK, Q2W, SUBCUTANEOUS
     Route: 058
     Dates: start: 20060202, end: 20061229
  2. METHOTREXATE [Concomitant]
  3. PULMICORT [Concomitant]
  4. NEXIUM [Concomitant]
  5. LEXAPRO [Concomitant]
  6. PREDNISONE TAB [Concomitant]
  7. ALBUTEROL (ALBUTEROL/ALBUTEROL SULFATE) [Concomitant]
  8. DUONEB (ALBUTEROL, ALBUTEROL SULFATE, IPRATROPIUM BROMIDE) [Concomitant]
  9. HYZAAR [Concomitant]
  10. CARDIZEM [Concomitant]
  11. CLONAZEPAM [Concomitant]

REACTIONS (4)
  - ARTHRALGIA [None]
  - INTERVERTEBRAL DISC INJURY [None]
  - PAIN IN EXTREMITY [None]
  - ROAD TRAFFIC ACCIDENT [None]
